FAERS Safety Report 9617013 (Version 1)
Quarter: 2013Q4

REPORT INFORMATION
  Report Type: Spontaneous
  Country: US (occurrence: None)
  Receive Date: 20131011
  Receipt Date: 20131011
  Transmission Date: 20140711
  Serious: Yes (Death)
  Sender: FDA-Public Use
  Company Number: None

PATIENT
  Age: 82 Year
  Sex: Female
  Weight: 68.04 kg

DRUGS (1)
  1. HALDOL [Suspect]
     Indication: DRUG THERAPY
     Dosage: 1 ORAL AND 1 BY INJECTION
     Dates: start: 20130706

REACTIONS (3)
  - Cardiac arrest [None]
  - Sudden death [None]
  - Drug interaction [None]
